FAERS Safety Report 8351520-9 (Version None)
Quarter: 2012Q2

REPORT INFORMATION
  Report Type: 
  Country: None (occurrence: None)
  Receive Date: 20120511
  Receipt Date: 20120427
  Transmission Date: 20120825
  Serious: Yes (Hospitalization, Other)
  Sender: FDA-Public Use
  Company Number: GB-AMGEN-GBRCT2012027561

PATIENT
  Age: 84 Year
  Sex: Male
  Weight: 79.9 kg

DRUGS (10)
  1. SYMBICORT [Concomitant]
     Dosage: UNK
     Dates: start: 20100709
  2. OMEPRAZOLE [Concomitant]
     Dosage: UNK
     Dates: start: 20111005
  3. ALBUTEROL [Concomitant]
     Dosage: UNK
     Dates: start: 20100709
  4. SIMVASTATIN [Concomitant]
     Dosage: UNK
     Dates: start: 20100709
  5. ETANERCEPT [Suspect]
     Dosage: 50 MG, QWK
     Dates: start: 20110317, end: 20111114
  6. IBUPROFEN [Concomitant]
     Dosage: UNK
     Dates: start: 20111201, end: 20111220
  7. ACETAMINOPHEN [Concomitant]
     Dosage: UNK
     Dates: start: 20111201, end: 20111220
  8. ACETYLSALICYLIC ACID SRT [Concomitant]
     Dosage: UNK
     Dates: start: 20100709
  9. TIOTROPIUM [Concomitant]
     Dosage: UNK
     Dates: start: 20100709
  10. GLICLAZIDE [Concomitant]
     Dosage: UNK
     Dates: start: 20100709

REACTIONS (2)
  - LUNG NEOPLASM MALIGNANT [None]
  - SMALL INTESTINAL RESECTION [None]
